FAERS Safety Report 20693999 (Version 2)
Quarter: 2022Q2

REPORT INFORMATION
  Report Type: Spontaneous
  Country: CA (occurrence: None)
  Receive Date: 20220411
  Receipt Date: 20220413
  Transmission Date: 20220721
  Serious: Yes (Hospitalization)
  Sender: FDA-Public Use
  Company Number: CA-ROCHE-3068377

PATIENT
  Age: 80 Year
  Sex: Female

DRUGS (36)
  1. CLONAZEPAM [Suspect]
     Active Substance: CLONAZEPAM
     Indication: Product used for unknown indication
     Route: 048
  2. ESBRIET [Suspect]
     Active Substance: PIRFENIDONE
     Indication: Idiopathic pulmonary fibrosis
     Route: 048
  3. ESBRIET [Suspect]
     Active Substance: PIRFENIDONE
     Route: 065
  4. ESBRIET [Suspect]
     Active Substance: PIRFENIDONE
     Route: 048
  5. ESBRIET [Suspect]
     Active Substance: PIRFENIDONE
     Route: 048
  6. ESBRIET [Suspect]
     Active Substance: PIRFENIDONE
     Route: 048
  7. ESBRIET [Suspect]
     Active Substance: PIRFENIDONE
     Route: 048
  8. ESBRIET [Suspect]
     Active Substance: PIRFENIDONE
     Route: 048
  9. ESBRIET [Suspect]
     Active Substance: PIRFENIDONE
     Route: 048
  10. ESBRIET [Suspect]
     Active Substance: PIRFENIDONE
     Route: 048
  11. ESBRIET [Suspect]
     Active Substance: PIRFENIDONE
     Route: 048
  12. ESBRIET [Suspect]
     Active Substance: PIRFENIDONE
     Route: 048
  13. ESBRIET [Suspect]
     Active Substance: PIRFENIDONE
     Route: 048
  14. ESBRIET [Suspect]
     Active Substance: PIRFENIDONE
     Route: 048
  15. AVELOX [Suspect]
     Active Substance: MOXIFLOXACIN HYDROCHLORIDE
     Indication: Product used for unknown indication
     Route: 065
  16. PREDNISONE [Suspect]
     Active Substance: PREDNISONE
     Indication: Product used for unknown indication
     Route: 065
  17. BETNOVATE [Concomitant]
     Active Substance: BETAMETHASONE
  18. COZAAR [Concomitant]
     Active Substance: LOSARTAN POTASSIUM
  19. CLOBETASOL [Concomitant]
     Active Substance: CLOBETASOL
  20. DOMPERIDONE [Concomitant]
     Active Substance: DOMPERIDONE
  21. DOXYCYCLINE [Concomitant]
     Active Substance: DOXYCYCLINE
  22. ELIQUIS [Concomitant]
     Active Substance: APIXABAN
  23. IMOVANE [Concomitant]
     Active Substance: ZOPICLONE
  24. INSULIN NOS [Concomitant]
     Active Substance: INSULIN NOS
  25. LANTUS [Concomitant]
     Active Substance: INSULIN GLARGINE
     Route: 058
  26. LASIX [Concomitant]
     Active Substance: FUROSEMIDE
  27. LIPITOR [Concomitant]
     Active Substance: ATORVASTATIN CALCIUM
     Route: 065
  28. METAMUCIL [Concomitant]
     Active Substance: PLANTAGO SEED
  29. METFORMIN [Concomitant]
     Active Substance: METFORMIN HYDROCHLORIDE
  30. MILK OF MAGNESIA [Concomitant]
     Active Substance: MAGNESIUM HYDROXIDE
  31. NYSTATIN [Concomitant]
     Active Substance: NYSTATIN
  32. CHOLESTYRAMINE [Concomitant]
     Active Substance: CHOLESTYRAMINE
     Route: 048
  33. ORACORT [Concomitant]
  34. SYNTHROID [Concomitant]
     Active Substance: LEVOTHYROXINE SODIUM
  35. MUPIROCIN [Concomitant]
     Active Substance: MUPIROCIN
     Route: 061
  36. TRAMADOL HYDROCHLORIDE [Concomitant]
     Active Substance: TRAMADOL HYDROCHLORIDE

REACTIONS (9)
  - Chest discomfort [Unknown]
  - Cough [Unknown]
  - Dyspnoea [Unknown]
  - Fatigue [Unknown]
  - Headache [Unknown]
  - Influenza [Unknown]
  - Nausea [Unknown]
  - Pulmonary embolism [Unknown]
  - Vomiting [Unknown]
